FAERS Safety Report 9565153 (Version 2)
Quarter: 2014Q1

REPORT INFORMATION
  Report Type: Spontaneous
  Country: GR (occurrence: GR)
  Receive Date: 20130930
  Receipt Date: 20140325
  Transmission Date: 20141002
  Serious: Yes (Hospitalization, Other)
  Sender: FDA-Public Use
  Company Number: PHHY2013GR107467

PATIENT
  Age: 54 Year
  Sex: Female

DRUGS (1)
  1. CAFERGOT [Suspect]
     Indication: MIGRAINE
     Dosage: UNK

REACTIONS (11)
  - Cardiac failure congestive [Unknown]
  - Oedema peripheral [Unknown]
  - Dyspnoea [Unknown]
  - Jugular vein distension [Unknown]
  - Mitral valve incompetence [Unknown]
  - Cardiac murmur [Unknown]
  - Haemodynamic instability [Unknown]
  - Tricuspid valve incompetence [Unknown]
  - Aortic valve incompetence [Unknown]
  - Drug abuse [Unknown]
  - Blood pressure decreased [Unknown]
